FAERS Safety Report 4577957-1 (Version None)
Quarter: 2005Q1

REPORT INFORMATION
  Report Type: 
  Country: None (occurrence: None)
  Receive Date: 20050209
  Receipt Date: 20050202
  Transmission Date: 20050727
  Serious: Yes (Hospitalization)
  Sender: FDA-Public Use
  Company Number: K200401826

PATIENT
  Age: 31 Year
  Sex: Male

DRUGS (9)
  1. ALTACE [Suspect]
     Dosage: 1.25 MG, QD, ORAL
     Route: 048
     Dates: start: 20040819, end: 20040826
  2. RIFAMPICIN [Suspect]
     Indication: INFECTION
     Dates: start: 20040813, end: 20040827
  3. ORBENINE (CLOXACILLIN SODIUM) 4G [Suspect]
     Dosage: 4G, QD
     Dates: start: 20040813, end: 20040827
  4. OMEPRAZOLE [Suspect]
     Dosage: ORAL
     Route: 048
     Dates: start: 20040813, end: 20040825
  5. HEPARIN [Concomitant]
  6. NEORECORMON ^BOEHRINGER MANNHEIM^ (EPOETIN BETA) [Concomitant]
  7. TEGELINE (IMMUNOGLOBULIN HUMAN NORMAL) [Concomitant]
  8. PRIMPERAN TAB [Concomitant]
  9. KAYEXALATE [Concomitant]

REACTIONS (2)
  - APLASIA PURE RED CELL [None]
  - THROMBOCYTOPENIA [None]
